FAERS Safety Report 4863745-5 (Version None)
Quarter: 2005Q4

REPORT INFORMATION
  Report Type: 
  Country: None (occurrence: None)
  Receive Date: 20051222
  Receipt Date: 20050725
  Transmission Date: 20060501
  Serious: No
  Sender: FDA-Public Use
  Company Number: US-GLAXOSMITHKLINE-A0567541A

PATIENT
  Age: 58 Year
  Sex: Female

DRUGS (3)
  1. FLONASE [Suspect]
     Dosage: 2SPR PER DAY
     Route: 045
     Dates: start: 20050707, end: 20050719
  2. CELEBREX [Concomitant]
  3. PRILOSEC [Concomitant]

REACTIONS (3)
  - BURNING SENSATION [None]
  - PAIN [None]
  - RASH [None]
